FAERS Safety Report 8008516-6 (Version None)
Quarter: 2011Q4

REPORT INFORMATION
  Report Type: 
  Country: None (occurrence: None)
  Receive Date: 20111227
  Receipt Date: 20111213
  Transmission Date: 20120403
  Serious: Yes (Death, Hospitalization, Other)
  Sender: FDA-Public Use
  Company Number: CA-ROCHE-1021862

PATIENT
  Sex: Female
  Weight: 86.2 kg

DRUGS (12)
  1. ACTONEL [Concomitant]
  2. WARFARIN [Concomitant]
  3. SIMVASTATIN [Concomitant]
  4. FOLIC ACID [Concomitant]
  5. MABTHERA [Suspect]
     Indication: RHEUMATOID ARTHRITIS
     Route: 042
     Dates: start: 20100729, end: 20100812
  6. MACROBID [Concomitant]
  7. RABEPRAZOLE SODIUM [Concomitant]
  8. ASPIRIN [Concomitant]
  9. CITALOPRAM HYDROBROMIDE [Concomitant]
  10. CELEXA [Concomitant]
  11. ACETAMINOPHEN [Concomitant]
  12. PREDNISONE [Concomitant]

REACTIONS (8)
  - URINARY TRACT INFECTION [None]
  - DEATH [None]
  - NAUSEA [None]
  - GENERAL PHYSICAL HEALTH DETERIORATION [None]
  - DEPRESSION [None]
  - VOMITING [None]
  - WOUND INFECTION [None]
  - CLOSTRIDIAL INFECTION [None]
